FAERS Safety Report 14797712 (Version 2)
Quarter: 2018Q3

REPORT INFORMATION
  Report Type: Spontaneous
  Country: FR (occurrence: FR)
  Receive Date: 20180424
  Receipt Date: 20180815
  Transmission Date: 20181010
  Serious: Yes (Other)
  Sender: FDA-Public Use
  Company Number: FR-TEVA-2018-FR-884807

PATIENT
  Age: 75 Year
  Sex: Female

DRUGS (8)
  1. ALDACTONE [Suspect]
     Active Substance: SPIRONOLACTONE
     Route: 048
     Dates: end: 20170529
  2. LOVENOX [Suspect]
     Active Substance: ENOXAPARIN SODIUM
     Route: 058
     Dates: start: 20170522, end: 20170529
  3. METFORMIN [Suspect]
     Active Substance: METFORMIN HYDROCHLORIDE
     Indication: PRODUCT USED FOR UNKNOWN INDICATION
     Dosage: 1700 MILLIGRAM DAILY;
     Route: 048
     Dates: end: 20170529
  4. ALDACTONE [Suspect]
     Active Substance: SPIRONOLACTONE
     Indication: HYPERTENSION
     Dosage: 1 DOSAGE FORMS DAILY;
     Route: 048
  5. AMOXICILLINE MYLAN [Suspect]
     Active Substance: AMOXICILLIN
     Indication: OSTEOMYELITIS
     Dosage: 6 GRAM DAILY;
     Dates: start: 20170525, end: 20170529
  6. FUROSEMIDE. [Suspect]
     Active Substance: FUROSEMIDE
     Indication: PRODUCT USED FOR UNKNOWN INDICATION
     Dosage: 60 MILLIGRAM DAILY;
     Route: 048
  7. LOVENOX [Suspect]
     Active Substance: ENOXAPARIN SODIUM
     Indication: PRODUCT USED FOR UNKNOWN INDICATION
     Dosage: 18000 IU (INTERNATIONAL UNIT) DAILY;
     Route: 058
  8. BACTRIM [Suspect]
     Active Substance: SULFAMETHOXAZOLE\TRIMETHOPRIM
     Indication: OSTEOMYELITIS
     Dosage: 4 DOSAGE FORMS DAILY;
     Route: 048
     Dates: start: 20170525, end: 20170529

REACTIONS (2)
  - Crystalluria [Recovered/Resolved]
  - Acute kidney injury [Recovered/Resolved]

NARRATIVE: CASE EVENT DATE: 201705
